FAERS Safety Report 5368607-5 (Version None)
Quarter: 2007Q2

REPORT INFORMATION
  Report Type: 
  Country: None (occurrence: None)
  Receive Date: 20070621
  Receipt Date: 20070612
  Transmission Date: 20071010
  Serious: Yes (Death)
  Sender: FDA-Public Use
  Company Number: B0475144A

PATIENT

DRUGS (1)
  1. ARRANON [Suspect]
     Indication: T-CELL LYMPHOMA
     Dosage: 1.5 G/M2 / CYCLIC / INTRAVENOUS INFUSI
     Route: 042

REACTIONS (1)
  - CEREBRAL HAEMORRHAGE [None]
